FAERS Safety Report 9255436 (Version 1)
Quarter: 2013Q2

REPORT INFORMATION
  Report Type: Spontaneous
  Country: US (occurrence: None)
  Receive Date: 20130423
  Receipt Date: 20130423
  Transmission Date: 20140414
  Serious: No
  Sender: FDA-Public Use
  Company Number: None

PATIENT
  Age: 47 Year
  Sex: Female
  Weight: 99.79 kg

DRUGS (1)
  1. VENLAFAXINE [Suspect]
     Indication: DEPRESSION
     Dosage: 225  DAILY  PO
     Route: 048
     Dates: start: 20130417, end: 20130421

REACTIONS (3)
  - Depression [None]
  - Product substitution issue [None]
  - Drug ineffective [None]
